FAERS Safety Report 4572440-1 (Version None)
Quarter: 2005Q1

REPORT INFORMATION
  Report Type: 
  Country: None (occurrence: None)
  Receive Date: 20050207
  Receipt Date: 20050127
  Transmission Date: 20050727
  Serious: Yes (Other)
  Sender: FDA-Public Use
  Company Number: BE-GLAXOSMITHKLINE-B0369901A

PATIENT
  Age: 64 Year
  Sex: Female

DRUGS (7)
  1. AVANDIA [Suspect]
     Dosage: 6MG PER DAY
     Route: 065
     Dates: start: 20020101, end: 20040101
  2. GLUCOPHAGE [Concomitant]
     Route: 065
  3. COZAAR [Concomitant]
     Route: 065
  4. ALDACTONE [Concomitant]
     Route: 065
  5. EMCONCOR [Concomitant]
     Route: 065
  6. LIVIAL [Concomitant]
     Route: 065
  7. CARDIOASPIRINE [Concomitant]
     Route: 065

REACTIONS (6)
  - CARDIAC FAILURE [None]
  - CREPITATIONS [None]
  - DYSPNOEA [None]
  - OEDEMA [None]
  - RENAL IMPAIRMENT [None]
  - RENAL TUBULAR ACIDOSIS [None]
